FAERS Safety Report 4519040-7 (Version None)
Quarter: 2004Q4

REPORT INFORMATION
  Report Type: 
  Country: None (occurrence: None)
  Receive Date: 20041201
  Receipt Date: 20041126
  Transmission Date: 20050328
  Serious: Yes (Other)
  Sender: FDA-Public Use
  Company Number: 2004-11-1017

PATIENT
  Sex: Female

DRUGS (2)
  1. VIRAFERONPEG [Suspect]
     Dates: start: 20000201, end: 20010201
  2. REBETOL [Suspect]
     Dates: start: 20000201, end: 20010201

REACTIONS (2)
  - GINGIVAL ATROPHY [None]
  - TOOTH LOSS [None]
